FAERS Safety Report 16899542 (Version 1)
Quarter: 2019Q4

REPORT INFORMATION
  Report Type: Spontaneous
  Country: US (occurrence: US)
  Receive Date: 20191008
  Receipt Date: 20191008
  Transmission Date: 20200122
  Serious: Yes (Hospitalization)
  Sender: FDA-Public Use
  Company Number: None

PATIENT
  Age: 55 Year
  Sex: Male

DRUGS (9)
  1. HYDROCO/APAP [Concomitant]
     Active Substance: ACETAMINOPHEN\HYDROCODONE
  2. CYCLOBENZAPR [Concomitant]
     Active Substance: CYCLOBENZAPRINE
  3. ZOLPIDEM [Concomitant]
     Active Substance: ZOLPIDEM TARTRATE
  4. TAMSULOSIN [Concomitant]
     Active Substance: TAMSULOSIN
  5. TEMAZEPAM. [Concomitant]
     Active Substance: TEMAZEPAM
  6. XELJANZ XR [Suspect]
     Active Substance: TOFACITINIB CITRATE
     Indication: RHEUMATOID ARTHRITIS
     Route: 048
     Dates: start: 20190731
  7. GABAPENTIN. [Concomitant]
     Active Substance: GABAPENTIN
  8. FAMOTIDINE. [Concomitant]
     Active Substance: FAMOTIDINE
  9. ATENOLOL. [Concomitant]
     Active Substance: ATENOLOL

REACTIONS (4)
  - Hallucination [None]
  - Stent placement [None]
  - Therapy cessation [None]
  - Chest pain [None]
